FAERS Safety Report 4347950-2 (Version None)
Quarter: 2004Q1

REPORT INFORMATION
  Report Type: 
  Country: None (occurrence: None)
  Receive Date: 20040325
  Receipt Date: 20040121
  Transmission Date: 20041129
  Serious: No
  Sender: FDA-Public Use
  Company Number: USA040157120

PATIENT
  Age: 79 Year
  Sex: Female

DRUGS (4)
  1. FORTEO [Suspect]
     Dates: start: 20040120
  2. ASTHMA INHALERS [Concomitant]
  3. HIGH BLOOD PRESSURE MEDS [Concomitant]
  4. PREDNISONE [Concomitant]

REACTIONS (2)
  - FATIGUE [None]
  - HEART RATE INCREASED [None]
